FAERS Safety Report 13068273 (Version 5)
Quarter: 2018Q2

REPORT INFORMATION
  Report Type: Report from Study
  Country: DE (occurrence: DE)
  Receive Date: 20161228
  Receipt Date: 20180516
  Transmission Date: 20180711
  Serious: Yes (Hospitalization)
  Sender: FDA-Public Use
  Company Number: DE-B.I. PHARMACEUTICALS,INC./RIDGEFIELD-2015-BI-48947DE

PATIENT
  Age: 78 Year
  Sex: Female
  Weight: 87 kg

DRUGS (19)
  1. DIOVAN [Concomitant]
     Active Substance: VALSARTAN
     Indication: PRODUCT USED FOR UNKNOWN INDICATION
     Route: 048
  2. NOVAMINSULFON [Concomitant]
     Active Substance: METAMIZOLE
     Indication: ADVERSE EVENT
     Route: 048
     Dates: start: 20150826, end: 20150911
  3. TAVOR (LORAZEPAM) [Concomitant]
     Active Substance: LORAZEPAM
     Indication: ANXIETY
     Route: 048
     Dates: start: 20150512
  4. HEPARIN [Concomitant]
     Active Substance: HEPARIN SODIUM
     Indication: PRODUCT USED FOR UNKNOWN INDICATION
     Route: 058
     Dates: start: 20150605
  5. METOPROLOL. [Concomitant]
     Active Substance: METOPROLOL
     Indication: PRODUCT USED FOR UNKNOWN INDICATION
     Route: 048
  6. ONDANSETRON [Concomitant]
     Active Substance: ONDANSETRON
     Indication: PROPHYLAXIS
     Route: 048
     Dates: start: 20141111
  7. GILOTRIF [Suspect]
     Active Substance: AFATINIB
     Indication: NON-SMALL CELL LUNG CANCER
     Route: 048
     Dates: start: 20150604
  8. GILOTRIF [Suspect]
     Active Substance: AFATINIB
     Route: 048
     Dates: start: 20150916
  9. EXCIPIAL [Concomitant]
     Indication: PROPHYLAXIS
     Dosage: LIPOCREME
     Route: 065
     Dates: start: 20150604
  10. DOXYCYCLIN [Concomitant]
     Active Substance: DOXYCYCLINE
     Indication: PROPHYLAXIS
     Route: 048
     Dates: start: 20150604
  11. ONDANSETRON [Concomitant]
     Active Substance: ONDANSETRON
     Route: 048
     Dates: start: 20150825
  12. METOHEXAL [Concomitant]
     Active Substance: METOPROLOL SUCCINATE
     Indication: PRODUCT USED FOR UNKNOWN INDICATION
     Route: 048
  13. CLINDAMYCIN. [Concomitant]
     Active Substance: CLINDAMYCIN
     Indication: ADVERSE EVENT
     Route: 048
     Dates: start: 20150825, end: 20151101
  14. GILOTRIF [Suspect]
     Active Substance: AFATINIB
     Route: 048
     Dates: start: 20150630, end: 20150901
  15. CLEXANE MULTI [Concomitant]
     Active Substance: ENOXAPARIN SODIUM
     Indication: PRODUCT USED FOR UNKNOWN INDICATION
     Route: 058
     Dates: start: 20140924
  16. CEFAZOLIN [Concomitant]
     Active Substance: CEFAZOLIN
     Indication: ADVERSE EVENT
     Route: 042
     Dates: start: 20150825, end: 20150914
  17. IMODIUM [Concomitant]
     Active Substance: LOPERAMIDE HYDROCHLORIDE
     Indication: PROPHYLAXIS
     Route: 048
  18. LYRICA [Concomitant]
     Active Substance: PREGABALIN
     Indication: PROPHYLAXIS
     Route: 048
  19. OXYGESIC [Concomitant]
     Active Substance: OXYCODONE
     Indication: ADVERSE EVENT
     Route: 048
     Dates: start: 20150825, end: 20150914

REACTIONS (20)
  - Soft tissue infection [Recovered/Resolved]
  - Dry skin [Not Recovered/Not Resolved]
  - Alopecia scarring [Recovered/Resolved]
  - Paronychia [Recovered/Resolved]
  - Skin injury [Recovered/Resolved]
  - Dysphagia [Not Recovered/Not Resolved]
  - Dyspnoea [Not Recovered/Not Resolved]
  - Alopecia [Not Recovered/Not Resolved]
  - Muscle spasms [Not Recovered/Not Resolved]
  - Salivary hypersecretion [Recovered/Resolved]
  - Erythema [Recovered/Resolved]
  - Nausea [Recovered/Resolved]
  - Oropharyngeal pain [Recovered/Resolved]
  - Upper-airway cough syndrome [Not Recovered/Not Resolved]
  - Mucosal infection [Recovered/Resolved]
  - Bronchospasm [Not Recovered/Not Resolved]
  - Diarrhoea [Recovered/Resolved]
  - Fatigue [Not Recovered/Not Resolved]
  - Arthritis infective [Recovered/Resolved]
  - Influenza like illness [Recovered/Resolved]

NARRATIVE: CASE EVENT DATE: 20150630
